FAERS Safety Report 21445202 (Version 1)
Quarter: 2022Q4

REPORT INFORMATION
  Report Type: Spontaneous
  Country: US (occurrence: None)
  Receive Date: 20221010
  Receipt Date: 20221010
  Transmission Date: 20230113
  Serious: Yes (Hospitalization)
  Sender: FDA-Public Use
  Company Number: None

PATIENT
  Sex: Female

DRUGS (17)
  1. STELARA [Suspect]
     Active Substance: USTEKINUMAB
     Indication: Psoriasis
     Dosage: OTHER FREQUENCY : WEEK 0, 4;?RX1: INJECT 0.5 ML UNDER THE SKIN (SUBCUTANEOUS INJECTION) AT WEEK O AN
     Route: 058
     Dates: start: 20220920
  2. STELARA [Suspect]
     Active Substance: USTEKINUMAB
     Dosage: OTHER FREQUENCY : EVERY 12 WEEKS;?
     Route: 058
  3. ACYCLOVIR [Concomitant]
     Active Substance: ACYCLOVIR
  4. AMITRIPTYLINE [Concomitant]
     Active Substance: AMITRIPTYLINE
  5. BUSPIRONE [Concomitant]
     Active Substance: BUSPIRONE HYDROCHLORIDE
  6. CELECOXIB [Concomitant]
     Active Substance: CELECOXIB
  7. COSENTYX [Concomitant]
     Active Substance: SECUKINUMAB
  8. FOLIC ACID [Concomitant]
     Active Substance: FOLIC ACID
  9. HUMIRA [Concomitant]
     Active Substance: ADALIMUMAB
  10. HYDROXYCHLOROQUINE [Concomitant]
     Active Substance: HYDROXYCHLOROQUINE
  11. HYDROXYZINE HYDROCHLORIDE [Concomitant]
     Active Substance: HYDROXYZINE HYDROCHLORIDE
  12. MEMANTINE [Concomitant]
     Active Substance: MEMANTINE
  13. PREDNISONE [Concomitant]
     Active Substance: PREDNISONE
  14. TERBINAFINE [Concomitant]
     Active Substance: TERBINAFINE
  15. TERBUTALINE [Concomitant]
     Active Substance: TERBUTALINE
  16. TOPIRAMATE [Concomitant]
     Active Substance: TOPIRAMATE
  17. TOPIRAMATE [Concomitant]
     Active Substance: TOPIRAMATE

REACTIONS (3)
  - Condition aggravated [None]
  - Pain [None]
  - Rash [None]
